FAERS Safety Report 4548121-7 (Version None)
Quarter: 2004Q4

REPORT INFORMATION
  Report Type: 
  Country: None (occurrence: None)
  Receive Date: 20041220
  Receipt Date: 20040909
  Transmission Date: 20050328
  Serious: Yes (Other)
  Sender: FDA-Public Use
  Company Number: 2004065896

PATIENT

DRUGS (2)
  1. VFEND [Suspect]
     Indication: ILL-DEFINED DISORDER
  2. ALL OTHER THERAPEUTIC PRODUCTS (ALL OTHER THERAPEUTIC PRODUCTS) [Concomitant]

REACTIONS (2)
  - EYE HAEMORRHAGE [None]
  - VISION BLURRED [None]
